FAERS Safety Report 4934900-0 (Version None)
Quarter: 2006Q1

REPORT INFORMATION
  Report Type: 
  Country: None (occurrence: None)
  Receive Date: 20060302
  Receipt Date: 20060217
  Transmission Date: 20060701
  Serious: Yes (Hospitalization)
  Sender: FDA-Public Use
  Company Number: 2006PV008446

PATIENT
  Age: 53 Year
  Sex: Female

DRUGS (7)
  1. BYETTA [Suspect]
     Indication: DIABETES MELLITUS NON-INSULIN-DEPENDENT
     Dosage: 5 MCG BID SC
     Route: 058
     Dates: start: 20050802, end: 20050810
  2. METFORMIN [Concomitant]
  3. GLIPIZIDE [Concomitant]
  4. NOVOLOG MIX 70/30 [Concomitant]
  5. HYDROCORTISONE [Concomitant]
  6. HYDROCHLOROTHIAZIDE [Concomitant]
  7. PRAVACHOL [Concomitant]

REACTIONS (5)
  - BLOOD CREATINE PHOSPHOKINASE INCREASED [None]
  - BLOOD GLUCOSE INCREASED [None]
  - DEHYDRATION [None]
  - NEPHROLITHIASIS [None]
  - PANCREATITIS [None]
